FAERS Safety Report 4904610-4 (Version None)
Quarter: 2006Q1

REPORT INFORMATION
  Report Type: 
  Country: None (occurrence: None)
  Receive Date: 20060113
  Receipt Date: 20051122
  Transmission Date: 20060701
  Serious: No
  Sender: FDA-Public Use
  Company Number: 2005SP004146

PATIENT
  Age: 62 Year
  Sex: Female
  Weight: 56.6996 kg

DRUGS (3)
  1. LUNESTA [Suspect]
     Indication: INSOMNIA
     Dosage: 3 MG; HS; ORAL
     Route: 048
     Dates: start: 20051105, end: 20051101
  2. AMBIEN [Concomitant]
  3. AMLODIPINE [Concomitant]

REACTIONS (1)
  - DYSGEUSIA [None]
